FAERS Safety Report 5707172-7 (Version None)
Quarter: 2008Q2

REPORT INFORMATION
  Report Type: 
  Country: None (occurrence: None)
  Receive Date: 20080415
  Receipt Date: 20080415
  Transmission Date: 20081010
  Serious: Yes (Hospitalization)
  Sender: FDA-Public Use
  Company Number: None

PATIENT
  Age: 56 Year
  Sex: Male
  Weight: 108 kg

DRUGS (2)
  1. METOPROLOL TARTRATE [Suspect]
     Indication: HYPERTENSION
     Dosage: 25MG BID PO
     Route: 048
     Dates: start: 20071126, end: 20080203
  2. METHADONE HCL [Suspect]
     Indication: PAIN
     Dosage: 10MG TID PO
     Route: 048
     Dates: start: 20080128, end: 20080203

REACTIONS (2)
  - BRADYCARDIA [None]
  - SEDATION [None]
